FAERS Safety Report 15284605 (Version 1)
Quarter: 2018Q3

REPORT INFORMATION
  Report Type: Spontaneous
  Country: US (occurrence: US)
  Receive Date: 20180801
  Receipt Date: 20180801
  Transmission Date: 20181010
  Serious: Yes (Hospitalization, Other)
  Sender: FDA-Public Use
  Company Number: None

PATIENT
  Age: 54 Year
  Sex: Female
  Weight: 65.8 kg

DRUGS (1)
  1. LEXISCAN [Suspect]
     Active Substance: REGADENOSON
     Indication: CARDIAC STRESS TEST
     Dosage: ?          OTHER FREQUENCY:ONCE;?
     Route: 040
     Dates: start: 20180717

REACTIONS (6)
  - Dyspnoea [None]
  - Bronchospasm [None]
  - Hypersensitivity [None]
  - Cardio-respiratory arrest [None]
  - Throat tightness [None]
  - Feeling abnormal [None]

NARRATIVE: CASE EVENT DATE: 20180717
